FAERS Safety Report 14207687 (Version 2)
Quarter: 2018Q1

REPORT INFORMATION
  Report Type: Report from Study
  Country: US (occurrence: US)
  Receive Date: 20171121
  Receipt Date: 20180111
  Transmission Date: 20180508
  Serious: No
  Sender: FDA-Public Use
  Company Number: US-AMGEN-USASL2017173648

PATIENT
  Age: 62 Year
  Sex: Female

DRUGS (2)
  1. ENBREL [Suspect]
     Active Substance: ETANERCEPT
     Indication: RHEUMATOID ARTHRITIS
  2. ENBREL [Suspect]
     Active Substance: ETANERCEPT
     Indication: PSORIATIC ARTHROPATHY
     Dosage: 50 MG, QWK
     Route: 065
     Dates: start: 201708, end: 20171230

REACTIONS (7)
  - Wrong technique in product usage process [Unknown]
  - Drug effect incomplete [Unknown]
  - Injection site pain [Unknown]
  - Psoriasis [Unknown]
  - Injection site erythema [Unknown]
  - Injection site pruritus [Unknown]
  - Injection site swelling [Unknown]

NARRATIVE: CASE EVENT DATE: 2017
